FAERS Safety Report 10599566 (Version 2)
Quarter: 2014Q4

REPORT INFORMATION
  Report Type: Spontaneous
  Country: US (occurrence: US)
  Receive Date: 20141121
  Receipt Date: 20141121
  Transmission Date: 20150529
  Serious: No
  Sender: FDA-Public Use
  Company Number: US-ASTRAZENECA-2012SE43652

PATIENT
  Age: 87 Year
  Sex: Female

DRUGS (1)
  1. CRESTOR [Suspect]
     Active Substance: ROSUVASTATIN CALCIUM
     Indication: BLOOD CHOLESTEROL DECREASED
     Route: 048

REACTIONS (5)
  - Weight decreased [Unknown]
  - Decreased activity [Unknown]
  - Memory impairment [Unknown]
  - Hypoacusis [Unknown]
  - Learning disorder [Unknown]

NARRATIVE: CASE EVENT DATE: 2014
